FAERS Safety Report 7518875-6 (Version None)
Quarter: 2011Q2

REPORT INFORMATION
  Report Type: 
  Country: None (occurrence: None)
  Receive Date: 20110602
  Receipt Date: 20110526
  Transmission Date: 20111010
  Serious: Yes (Other)
  Sender: FDA-Public Use
  Company Number: US-BRISTOL-MYERS SQUIBB COMPANY-15748189

PATIENT
  Age: 78 Year
  Sex: Female
  Weight: 57 kg

DRUGS (10)
  1. COUMADIN [Suspect]
     Indication: ATRIAL FIBRILLATION
     Dosage: 1 DF = 2.5 MG ON MON, WED,FRIDAY AND 5 MG ON TUESDAY, THURSDAY, SATURDAY AND SUNDAY
  2. MAGNESIUM SULFATE [Concomitant]
  3. SYNTHROID [Concomitant]
  4. HYDROCHLOROTHIAZIDE [Concomitant]
  5. NIFEDIPINE [Concomitant]
  6. KLOR-CON [Concomitant]
  7. COREG [Concomitant]
  8. NEXIUM [Concomitant]
  9. VITAMIN D [Concomitant]
     Dosage: 1DF:100 UNIT NOS
  10. AVAPRO [Concomitant]

REACTIONS (3)
  - DUODENAL ULCER [None]
  - GASTRIC ULCER HAEMORRHAGE [None]
  - PEPTIC ULCER [None]
